FAERS Safety Report 19278279 (Version 1)
Quarter: 2021Q2

REPORT INFORMATION
  Report Type: Spontaneous
  Country: SA (occurrence: SA)
  Receive Date: 20210520
  Receipt Date: 20210520
  Transmission Date: 20210717
  Serious: Yes (Other)
  Sender: FDA-Public Use
  Company Number: SA-LUPIN PHARMACEUTICALS INC.-2021-07528

PATIENT
  Age: 11 Year
  Sex: Male

DRUGS (5)
  1. ENOXAPARIN [Concomitant]
     Active Substance: ENOXAPARIN
     Indication: THROMBOSIS PROPHYLAXIS
     Dosage: 20 INTERNATIONAL UNIT, QD
     Route: 058
     Dates: start: 202004
  2. HYDROXYCHLOROQUINE [Suspect]
     Active Substance: HYDROXYCHLOROQUINE
     Indication: COVID-19
     Dosage: 6.5 MILLIGRAM/KILOGRAM, BID
     Route: 065
     Dates: start: 20200415
  3. IMMUNOGLOBULIN [Concomitant]
     Indication: GUILLAIN-BARRE SYNDROME
     Dosage: UNK 1G/KG/DAY
     Route: 042
     Dates: start: 202004, end: 202004
  4. ACETAMINOPHEN. [Concomitant]
     Active Substance: ACETAMINOPHEN
     Indication: RESPIRATORY SYMPTOM
     Dosage: 10 MILLIGRAM/KILOGRAM
     Route: 065
     Dates: start: 20200415
  5. HYDROXYCHLOROQUINE [Suspect]
     Active Substance: HYDROXYCHLOROQUINE
     Dosage: 3.25 MILLIGRAM/KILOGRAM, BID
     Route: 065
     Dates: start: 202004, end: 202004

REACTIONS (1)
  - Off label use [Unknown]

NARRATIVE: CASE EVENT DATE: 202004
